FAERS Safety Report 4279013-9 (Version None)
Quarter: 2004Q1

REPORT INFORMATION
  Report Type: 
  Country: None (occurrence: None)
  Receive Date: 20040121
  Receipt Date: 20040106
  Transmission Date: 20041129
  Serious: Yes (Other)
  Sender: FDA-Public Use
  Company Number: USA030742966

PATIENT
  Age: 69 Year
  Sex: Female
  Weight: 68 kg

DRUGS (5)
  1. EVISTA [Suspect]
     Indication: OSTEOPOROSIS
     Dates: start: 19980101
  2. FORTEO [Suspect]
     Indication: OSTEOPOROSIS
     Dates: start: 20030601
  3. PREVACID [Concomitant]
  4. FOSAMAX [Concomitant]
  5. CALCIUM [Concomitant]

REACTIONS (5)
  - BLOOD TRIGLYCERIDES INCREASED [None]
  - FRACTURE [None]
  - INJECTION SITE HAEMORRHAGE [None]
  - PAIN [None]
  - SPINAL FRACTURE [None]
